FAERS Safety Report 5326267-3 (Version None)
Quarter: 2007Q2

REPORT INFORMATION
  Report Type: 
  Country: None (occurrence: None)
  Receive Date: 20070514
  Receipt Date: 20070514
  Transmission Date: 20071010
  Serious: No
  Sender: FDA-Public Use
  Company Number: None

PATIENT
  Age: 51 Year
  Sex: Female
  Weight: 49.8957 kg

DRUGS (4)
  1. ACTONEL [Suspect]
     Indication: OSTEOPOROSIS
     Dosage: 1 TABLET WEEKLY ORALLY
     Route: 048
     Dates: start: 20070331
  2. VITAMIN CAP [Concomitant]
  3. CALCIUM CHLORIDE [Concomitant]
  4. ASPIRIN [Concomitant]

REACTIONS (4)
  - BACK PAIN [None]
  - DYSPHAGIA [None]
  - MUSCULOSKELETAL PAIN [None]
  - NECK PAIN [None]
